FAERS Safety Report 6174292-5 (Version None)
Quarter: 2009Q2

REPORT INFORMATION
  Report Type: 
  Country: None (occurrence: None)
  Receive Date: 20090430
  Receipt Date: 20080505
  Transmission Date: 20091009
  Serious: No
  Sender: FDA-Public Use
  Company Number: US-ASTRAZENECA-2008UW09120

PATIENT
  Age: 71 Year
  Sex: Male
  Weight: 108.9 kg

DRUGS (7)
  1. NEXIUM [Suspect]
     Indication: GASTROOESOPHAGEAL REFLUX DISEASE
     Route: 048
     Dates: start: 20050101
  2. ZEGERID [Suspect]
  3. FLOMAX [Concomitant]
  4. WARFARIN [Concomitant]
  5. METOPROLOL TARTRATE [Concomitant]
  6. DIOVAN [Concomitant]
  7. HYDROCODONE BITARTRATE [Concomitant]

REACTIONS (9)
  - ABDOMINAL PAIN [None]
  - BLISTER [None]
  - DYSGEUSIA [None]
  - ERYTHEMA [None]
  - FACIAL PAIN [None]
  - OEDEMA PERIPHERAL [None]
  - ORAL DISCOMFORT [None]
  - PRURITUS [None]
  - TINNITUS [None]
